FAERS Safety Report 4532889-X (Version None)
Quarter: 2004Q4

REPORT INFORMATION
  Report Type: 
  Country: None (occurrence: None)
  Receive Date: 20041221
  Receipt Date: 20041207
  Transmission Date: 20050328
  Serious: Yes (Hospitalization)
  Sender: FDA-Public Use
  Company Number: PHEH2004US13172

PATIENT

DRUGS (1)
  1. ZELNORM [Suspect]
     Indication: IMPAIRED GASTRIC EMPTYING
     Dosage: 6 MG, BID
     Dates: end: 20040930

REACTIONS (6)
  - ABDOMINAL PAIN LOWER [None]
  - COLECTOMY PARTIAL [None]
  - INTESTINAL FISTULA [None]
  - INTESTINAL PERFORATION [None]
  - ISCHAEMIC ULCER [None]
  - PERITONITIS [None]
